FAERS Safety Report 18778035 (Version 6)
Quarter: 2021Q2

REPORT INFORMATION
  Report Type: Report from Study
  Country: FR (occurrence: FR)
  Receive Date: 20210122
  Receipt Date: 20210611
  Transmission Date: 20210717
  Serious: Yes (Hospitalization)
  Sender: FDA-Public Use
  Company Number: FR-ROCHE-2754293

PATIENT
  Age: 74 Year
  Sex: Male
  Weight: 66 kg

DRUGS (2)
  1. BCG [Suspect]
     Active Substance: BCG VACCINE
     Indication: BLADDER TRANSITIONAL CELL CARCINOMA
     Dosage: ON 29/SEP/2020, HE RECEIVED LAST ADMINISTRATIVE DOSE OF IV BCG (50 ML, CUMULATIVE DOSE: 150 ML) PRIO
     Route: 042
     Dates: start: 20200915, end: 20200929
  2. ATEZOLIZUMAB. [Suspect]
     Active Substance: ATEZOLIZUMAB
     Indication: BLADDER TRANSITIONAL CELL CARCINOMA
     Dosage: ON 15/SEP/2020, HE RECEIVED LAST ADMINISTRATIVE DOSE OF IV ATEZOLIZUMAB (1200 MG, CUMULATIVE DOSE: 1
     Route: 042
     Dates: start: 20200915, end: 20200915

REACTIONS (1)
  - Orchitis [Recovering/Resolving]

NARRATIVE: CASE EVENT DATE: 20200930
